FAERS Safety Report 10523222 (Version 2)
Quarter: 2014Q4

REPORT INFORMATION
  Report Type: Report from Study
  Country: FR (occurrence: FR)
  Receive Date: 20141016
  Receipt Date: 20141016
  Transmission Date: 20150528
  Serious: Yes (Other)
  Sender: FDA-Public Use
  Company Number: FR-GLAXOSMITHKLINE-B0982486A

PATIENT
  Age: 55 Year
  Sex: Male
  Weight: 49 kg

DRUGS (5)
  1. INTELENCE [Suspect]
     Active Substance: ETRAVIRINE
     Indication: HIV INFECTION
     Dosage: 200 MG, BID
     Route: 048
     Dates: start: 20130227
  2. PREZISTA [Suspect]
     Active Substance: DARUNAVIR ETHANOLATE
     Indication: HIV INFECTION
     Dosage: DOSE: 200,000 IU.  1 AMPOULE ONCE A MONTH FOR 2 MONTHS.
     Route: 048
     Dates: start: 20130227
  3. NORVIR [Suspect]
     Active Substance: RITONAVIR
     Indication: HIV INFECTION
     Dosage: 100 MG, BID
     Route: 048
     Dates: start: 20061223
  4. INTELENCE [Suspect]
     Active Substance: ETRAVIRINE
     Dosage: 100 MG, BID
     Dates: start: 20140703
  5. DOLUTEGRAVIR [Suspect]
     Active Substance: DOLUTEGRAVIR
     Indication: HIV INFECTION
     Dosage: 50 MG, BID
     Route: 048
     Dates: start: 20130319

REACTIONS (2)
  - Gamma-glutamyltransferase increased [Recovered/Resolved]
  - Overdose [None]

NARRATIVE: CASE EVENT DATE: 20130523
